FAERS Safety Report 8840849 (Version 1)
Quarter: 2012Q4

REPORT INFORMATION
  Report Type: Report from Study
  Country: GB (occurrence: GB)
  Receive Date: 20121015
  Receipt Date: 20121015
  Transmission Date: 20130627
  Serious: Yes (Hospitalization)
  Sender: FDA-Public Use
  Company Number: GB-ASTRAZENECA-2012SE73474

PATIENT
  Age: 64 Year
  Sex: Male
  Weight: 65.4 kg

DRUGS (7)
  1. VANDETANIB [Suspect]
     Indication: PANCREATIC CARCINOMA
     Route: 048
     Dates: start: 20120810, end: 20120919
  2. GEMCITABINE [Suspect]
     Indication: PANCREATIC CARCINOMA
     Route: 041
     Dates: start: 20120810, end: 20120816
  3. GEMCITABINE [Suspect]
     Indication: PANCREATIC CARCINOMA
     Route: 041
     Dates: start: 20120817, end: 20120823
  4. GEMCITABINE [Suspect]
     Indication: PANCREATIC CARCINOMA
     Route: 041
     Dates: start: 20120824, end: 20120830
  5. GEMCITABINE [Suspect]
     Indication: PANCREATIC CARCINOMA
     Route: 041
     Dates: start: 20120831
  6. PARACETAMOL [Concomitant]
     Indication: PAIN
     Route: 048
     Dates: start: 20120909
  7. LANSOPRAZOLE [Concomitant]
     Indication: REFLUX GASTRITIS
     Route: 048
     Dates: start: 20120909

REACTIONS (1)
  - Pyrexia [Recovered/Resolved]
